FAERS Safety Report 12270721 (Version 3)
Quarter: 2016Q2

REPORT INFORMATION
  Report Type: Spontaneous
  Country: JP (occurrence: JP)
  Receive Date: 20160415
  Receipt Date: 20160505
  Transmission Date: 20160815
  Serious: Yes (Other)
  Sender: FDA-Public Use
  Company Number: JP-SUN PHARMACEUTICAL INDUSTRIES LTD-2016RR-113158

PATIENT
  Age: 55 Year
  Sex: Male

DRUGS (13)
  1. U-PAN [Suspect]
     Active Substance: LORAZEPAM
     Indication: ALCOHOL WITHDRAWAL SYNDROME
     Dosage: 1.5 MG, UNK
     Route: 048
  2. RISPERIDONE YOSHITOM [Suspect]
     Active Substance: RISPERIDONE
     Indication: ALCOHOL WITHDRAWAL SYNDROME
     Dosage: 1 MG, UNK
     Route: 065
  3. BENZALIN [Suspect]
     Active Substance: NITRAZEPAM
     Indication: ALCOHOL WITHDRAWAL SYNDROME
     Dosage: 10 MG, UNK
     Route: 048
  4. CYANAMIDE MITSUBISHI TANABE PHARMA [Suspect]
     Active Substance: CYANAMIDE
     Indication: ALCOHOL WITHDRAWAL SYNDROME
     Dosage: 7 ML, UNK
     Route: 065
  5. VITAMEDIN [Concomitant]
     Active Substance: CYANOCOBALAMIN\PYRIDOXINE HYDROCHLORIDE\THIAMINE
     Indication: PRODUCT USED FOR UNKNOWN INDICATION
     Dosage: 75 MG, UNK
     Route: 048
  6. ABILIFY [Suspect]
     Active Substance: ARIPIPRAZOLE
     Indication: FLIGHT OF IDEAS
  7. ABILIFY [Suspect]
     Active Substance: ARIPIPRAZOLE
     Indication: IRRITABILITY
  8. HALOPERIDOL. [Concomitant]
     Active Substance: HALOPERIDOL
     Indication: PRODUCT USED FOR UNKNOWN INDICATION
     Dosage: 5 MG, UNK
     Route: 030
  9. RISPERIDONE YOSHITOM [Suspect]
     Active Substance: RISPERIDONE
     Indication: ALCOHOL WITHDRAWAL SYNDROME
     Dosage: 2 MG, UNK
     Route: 065
  10. BENZALIN [Suspect]
     Active Substance: NITRAZEPAM
     Indication: ALCOHOL WITHDRAWAL SYNDROME
     Dosage: 5 MG, UNK
     Route: 065
  11. TETRAMIDE [Suspect]
     Active Substance: MIANSERIN
     Indication: ALCOHOL WITHDRAWAL SYNDROME
     Dosage: 20 MG, UNK
     Route: 048
  12. ABILIFY [Suspect]
     Active Substance: ARIPIPRAZOLE
     Indication: ANXIETY
     Dosage: 12 MG, UNK
     Route: 065
  13. ABILIFY [Suspect]
     Active Substance: ARIPIPRAZOLE
     Indication: ALCOHOL WITHDRAWAL SYNDROME
     Dosage: 6 MG, UNK
     Route: 065

REACTIONS (2)
  - Delusion [Recovered/Resolved]
  - Extrapyramidal disorder [Recovered/Resolved]
